FAERS Safety Report 18104119 (Version 1)
Quarter: 2020Q3

REPORT INFORMATION
  Report Type: Spontaneous
  Country: US (occurrence: US)
  Receive Date: 20200802
  Receipt Date: 20200802
  Transmission Date: 20201103
  Serious: Yes (Hospitalization)
  Sender: FDA-Public Use
  Company Number: None

PATIENT
  Age: 54 Year
  Sex: Male
  Weight: 122 kg

DRUGS (1)
  1. SEMAGLUTIDE (SEMAGLUTIDE 0.5MG/0.375ML INJ, SOLN, PEN, 1.5ML) [Suspect]
     Active Substance: SEMAGLUTIDE
     Indication: DIABETES MELLITUS
     Route: 058
     Dates: start: 20200527, end: 20200605

REACTIONS (5)
  - Blood creatinine increased [None]
  - Nausea [None]
  - Acute kidney injury [None]
  - Blood urea increased [None]
  - Vomiting [None]

NARRATIVE: CASE EVENT DATE: 20200605
